FAERS Safety Report 7785629-5 (Version None)
Quarter: 2011Q3

REPORT INFORMATION
  Report Type: 
  Country: None (occurrence: None)
  Receive Date: 20110929
  Receipt Date: 20110921
  Transmission Date: 20111222
  Serious: Yes (Other)
  Sender: FDA-Public Use
  Company Number: DE-AMGEN-DEUSP2011039486

PATIENT
  Age: 83 Year
  Sex: Female
  Weight: 49 kg

DRUGS (2)
  1. DEKRISTOL 20000 [Concomitant]
     Dosage: 1 UNK, UNK
     Dates: start: 20110701
  2. PROLIA [Suspect]
     Indication: OSTEOPOROSIS
     Dosage: 60 MG, UNK
     Dates: start: 20110512

REACTIONS (8)
  - BONE PAIN [None]
  - LUMBAR SPINAL STENOSIS [None]
  - PERIPHERAL ARTERIAL OCCLUSIVE DISEASE [None]
  - GAIT DISTURBANCE [None]
  - SCIATICA [None]
  - JOINT INJURY [None]
  - COCCYDYNIA [None]
  - SENSATION OF HEAVINESS [None]
